FAERS Safety Report 9513841 (Version 1)
Quarter: 2013Q1

REPORT INFORMATION
  Report Type: Spontaneous
  Country: US (occurrence: None)
  Receive Date: 20130305
  Receipt Date: 20130305
  Transmission Date: 20140127
  Serious: Yes (Other)
  Sender: FDA-Public Use
  Company Number: 163-21880-12102432

PATIENT
  Age: 53 Year
  Sex: Male
  Weight: 99.79 kg

DRUGS (11)
  1. REVLIMID (LENALIDOMIDE) [Suspect]
     Indication: PLASMA CELL MYELOMA
     Dosage: 1 IN 1 D
     Route: 048
     Dates: start: 201206
  2. ZOMETA (ZOLEDRONIC ACID) [Concomitant]
  3. TRAMADOL [Concomitant]
  4. PROTEIN (PLASMA PROTEIN FRACTION (HUMAN) [Concomitant]
  5. LUNESTA (ESZOPICLONE) [Concomitant]
  6. HYDROCODONE/APAP (VICODIN) [Concomitant]
  7. GABAPENTIN (GABAPENTIN) [Concomitant]
  8. DILAUDID (HYDROMORPHONE HYDROCHLORIDE) [Concomitant]
  9. AMBIEN (ZOLPIDEM TARTRATE) [Concomitant]
  10. ASA (ACETYLSALICYLIC ACID) [Concomitant]
  11. ATIVAN (LORAZEPAM) [Concomitant]

REACTIONS (1)
  - Gingival infection [None]
